FAERS Safety Report 13357708 (Version 1)
Quarter: 2017Q1

REPORT INFORMATION
  Report Type: Spontaneous
  Country: GB (occurrence: GB)
  Receive Date: 20170322
  Receipt Date: 20170322
  Transmission Date: 20170429
  Serious: Yes (Hospitalization)
  Sender: FDA-Public Use
  Company Number: GB-ACCORD-049259

PATIENT
  Age: 79 Year
  Sex: Male

DRUGS (6)
  1. SERTRALINE [Suspect]
     Active Substance: SERTRALINE HYDROCHLORIDE
     Indication: PRODUCT USED FOR UNKNOWN INDICATION
     Route: 048
     Dates: start: 20170202, end: 20170227
  2. LORAZEPAM. [Concomitant]
     Active Substance: LORAZEPAM
  3. PREGABALIN. [Concomitant]
     Active Substance: PREGABALIN
  4. ATORVASTATIN/ATORVASTATIN CALCIUM [Concomitant]
  5. ACENOCOUMAROL [Concomitant]
     Active Substance: ACENOCOUMAROL
  6. SERTRALINE [Suspect]
     Active Substance: SERTRALINE HYDROCHLORIDE
     Route: 048
     Dates: start: 20170202, end: 20170227

REACTIONS (4)
  - Somnolence [Unknown]
  - Disorganised speech [Unknown]
  - Hyponatraemia [Recovering/Resolving]
  - Confusional state [Unknown]
